FAERS Safety Report 18623703 (Version 1)
Quarter: 2020Q4

REPORT INFORMATION
  Report Type: Spontaneous
  Country: US (occurrence: US)
  Receive Date: 20201216
  Receipt Date: 20201216
  Transmission Date: 20210114
  Serious: Yes (Hospitalization)
  Sender: FDA-Public Use
  Company Number: None

PATIENT
  Age: 52 Year
  Sex: Female
  Weight: 73.35 kg

DRUGS (7)
  1. MEMANTINE 5MG BID [Concomitant]
     Dates: start: 20201130
  2. BUPROPION 200MG BID [Concomitant]
     Dates: start: 20201130
  3. BETHANECHOL 25MG TID [Concomitant]
     Dates: start: 20201209
  4. DOCUSATE 100MG BID [Concomitant]
     Dates: start: 20201213
  5. ESCITALOPRAM 20MG DAILY [Concomitant]
     Active Substance: ESCITALOPRAM OXALATE
     Dates: start: 20201130
  6. LINZESS 290MCG DAILY [Concomitant]
     Dates: start: 20201208
  7. LACOSAMIDE. [Suspect]
     Active Substance: LACOSAMIDE
     Indication: SEIZURE PROPHYLAXIS
     Route: 048
     Dates: start: 20201215, end: 20201216

REACTIONS (3)
  - Hypotension [None]
  - Cold sweat [None]
  - Loss of consciousness [None]

NARRATIVE: CASE EVENT DATE: 20201216
